FAERS Safety Report 13921035 (Version 1)
Quarter: 2017Q3

REPORT INFORMATION
  Report Type: Spontaneous
  Country: US (occurrence: US)
  Receive Date: 20170830
  Receipt Date: 20170830
  Transmission Date: 20171127
  Serious: Yes (Life-Threatening, Other)
  Sender: FDA-Public Use
  Company Number: US-FRESENIUS KABI-FK201707128

PATIENT
  Age: 51 Year
  Sex: Male

DRUGS (5)
  1. DAPTOMYCIN. [Suspect]
     Active Substance: DAPTOMYCIN
     Indication: PRODUCT USED FOR UNKNOWN INDICATION
     Route: 065
  2. MORPHINE SULFATE. [Suspect]
     Active Substance: MORPHINE SULFATE
     Indication: PRODUCT USED FOR UNKNOWN INDICATION
     Route: 065
  3. CYTARABINE. [Suspect]
     Active Substance: CYTARABINE
     Indication: CHEMOTHERAPY
     Route: 065
  4. CLOFARABINE (MANUFACTURER UNKNOWN) [Suspect]
     Active Substance: CLOFARABINE
     Indication: CHEMOTHERAPY
     Route: 065
  5. CYTARABINE. [Suspect]
     Active Substance: CYTARABINE
     Indication: PRODUCT USED FOR UNKNOWN INDICATION
     Route: 065

REACTIONS (22)
  - Drug eruption [Recovered/Resolved]
  - Bacteraemia [None]
  - Lacunar infarction [None]
  - Mucosal inflammation [None]
  - Bronchopulmonary aspergillosis [None]
  - Pulmonary mass [None]
  - Gastrooesophageal reflux disease [None]
  - Retinal haemorrhage [Recovering/Resolving]
  - Febrile neutropenia [Recovered/Resolved]
  - Drug level increased [None]
  - Hypophosphataemia [None]
  - Stomatococcal infection [Recovered/Resolved]
  - Sinusitis [None]
  - Cerebral infarction [None]
  - Muscle spasms [None]
  - Headache [None]
  - Sepsis [None]
  - Pancytopenia [None]
  - Cerebrovascular accident [Unknown]
  - Hypotension [None]
  - Lung infiltration [None]
  - Acute myeloid leukaemia recurrent [None]
